FAERS Safety Report 4480857-9 (Version None)
Quarter: 2004Q4

REPORT INFORMATION
  Report Type: 
  Country: None (occurrence: None)
  Receive Date: 20040923
  Receipt Date: 20040615
  Transmission Date: 20050328
  Serious: No
  Sender: FDA-Public Use
  Company Number: USA030740656

PATIENT
  Age: 78 Year
  Sex: Female
  Weight: 37 kg

DRUGS (11)
  1. FORTEO [Suspect]
     Indication: OSTEOPOROSIS
     Dosage: 20 UG/L DAY
     Dates: start: 20030501
  2. WELCHOL [Concomitant]
  3. ZETIA [Concomitant]
  4. FISH OIL [Concomitant]
  5. CENTRUM [Concomitant]
  6. VITAMIN B-12 [Concomitant]
  7. MAGNESIUM [Concomitant]
  8. ZINC [Concomitant]
  9. CLONAZEPAM [Concomitant]
  10. ACTONEL [Concomitant]
  11. CALCIUM [Concomitant]

REACTIONS (10)
  - AMNESIA [None]
  - APATHY [None]
  - ASTHENOPIA [None]
  - CRYING [None]
  - FATIGUE [None]
  - FEELING ABNORMAL [None]
  - INFLUENZA LIKE ILLNESS [None]
  - NAUSEA [None]
  - NERVOUSNESS [None]
  - TREMOR [None]
